FAERS Safety Report 13064228 (Version 1)
Quarter: 2016Q4

REPORT INFORMATION
  Report Type: Spontaneous
  Country: US (occurrence: US)
  Receive Date: 20161223
  Receipt Date: 20161223
  Transmission Date: 20170207
  Serious: Yes (Other)
  Sender: FDA-Public Use
  Company Number: None

PATIENT
  Age: 63 Year
  Sex: Male
  Weight: 93.3 kg

DRUGS (1)
  1. CAMPATH [Suspect]
     Active Substance: ALEMTUZUMAB
     Indication: T-CELL PROLYMPHOCYTIC LEUKAEMIA
     Dosage: ?          OTHER FREQUENCY:3 TIMES WEEKLY;?
     Route: 042
     Dates: start: 20161205, end: 20161223

REACTIONS (2)
  - Infusion related reaction [None]
  - Flushing [None]

NARRATIVE: CASE EVENT DATE: 20161207
